FAERS Safety Report 20875378 (Version 18)
Quarter: 2025Q4

REPORT INFORMATION
  Report Type: Spontaneous
  Country: CA (occurrence: CA)
  Receive Date: 20220526
  Receipt Date: 20251210
  Transmission Date: 20260117
  Serious: Yes (Other)
  Sender: CELLTRION
  Company Number: CA-CELLTRION INC.-2022CA006314

PATIENT

DRUGS (45)
  1. TRUXIMA [Suspect]
     Active Substance: RITUXIMAB-ABBS
     Indication: Rheumatoid arthritis
     Dosage: 1000 MG INFUSION #2
     Route: 042
     Dates: start: 20220421
  2. TRUXIMA [Suspect]
     Active Substance: RITUXIMAB-ABBS
     Dosage: 1000 MG (INFUSION #5)
     Route: 042
     Dates: start: 20220421
  3. TRUXIMA [Suspect]
     Active Substance: RITUXIMAB-ABBS
     Dosage: 1000 MG
     Route: 042
     Dates: start: 20220421
  4. TRUXIMA [Suspect]
     Active Substance: RITUXIMAB-ABBS
     Dosage: 1000 MG INFUSION #8
     Route: 042
     Dates: start: 20220421
  5. TRUXIMA [Suspect]
     Active Substance: RITUXIMAB-ABBS
     Dosage: 1000 MG, DAY 1 /DAY 15/DAY1, DAY15
     Route: 042
     Dates: start: 20220421
  6. TRUXIMA [Suspect]
     Active Substance: RITUXIMAB-ABBS
     Dosage: 1000 MG, DAY 1
     Route: 042
     Dates: start: 20220421
  7. TRUXIMA [Suspect]
     Active Substance: RITUXIMAB-ABBS
     Dosage: 1000 MG, INFUSION#9
     Route: 042
     Dates: start: 20220421
  8. TRUXIMA [Suspect]
     Active Substance: RITUXIMAB-ABBS
     Dosage: 1000 MG AT DAY 1 + 15
     Route: 042
     Dates: start: 20220421
  9. BENADRYL [Concomitant]
     Active Substance: DIPHENHYDRAMINE HYDROCHLORIDE
     Indication: Premedication
     Dosage: 50 MG
     Route: 048
  10. SOLU-MEDROL [Concomitant]
     Active Substance: METHYLPREDNISOLONE SODIUM SUCCINATE
     Indication: Premedication
     Dosage: 100 MG IV IN NS 50 ML START IN 15 MIN
     Route: 042
  11. ACETAMINOPHEN [Concomitant]
     Active Substance: ACETAMINOPHEN
     Indication: Premedication
     Dosage: 650 MG
     Route: 048
  12. ACETAMINOPHEN [Concomitant]
     Active Substance: ACETAMINOPHEN
     Indication: Pain
     Dosage: 500 MG, PRN
  13. ACETAMINOPHEN [Concomitant]
     Active Substance: ACETAMINOPHEN
     Dosage: 500 MG
  14. PREGABALIN [Concomitant]
     Active Substance: PREGABALIN
     Indication: Relaxation therapy
     Dosage: 50 MG, ONCE DAILY
  15. PAROXETINE [Concomitant]
     Active Substance: PAROXETINE
     Indication: Depression
     Dosage: 20 MG, ONCE DAILY (UNSURE OF REASON WHY)
  16. PAROXETINE [Concomitant]
     Active Substance: PAROXETINE
     Dosage: 30 MG, ONCE DAILY AT BREAKFAST
  17. PAROXETINE [Concomitant]
     Active Substance: PAROXETINE
     Dosage: 30 MG
  18. PREGABALIN [Concomitant]
     Active Substance: PREGABALIN
     Indication: Relaxation therapy
     Dosage: 75 MG, ONCE DAILY
  19. PREGABALIN [Concomitant]
     Active Substance: PREGABALIN
     Dosage: 50 MILLIGRAM
  20. DEXILANT [Concomitant]
     Active Substance: DEXLANSOPRAZOLE
     Indication: Rheumatoid arthritis
     Dosage: 60 MG, ONCE DAILY
  21. DEXILANT [Concomitant]
     Active Substance: DEXLANSOPRAZOLE
     Dosage: 60 MG
  22. METHOTREXATE [Concomitant]
     Active Substance: METHOTREXATE
     Indication: Rheumatoid arthritis
     Dosage: 20 MG INJECTION ONCE WEEKLY DONE AT HOME
  23. FOLIC ACID [Concomitant]
     Active Substance: FOLIC ACID
     Indication: Liver disorder
     Dosage: 5 MG, EVERY TWO DAYS IN THE MORNING
  24. FOLIC ACID [Concomitant]
     Active Substance: FOLIC ACID
     Dosage: 5 MG
  25. JAMP VITAMIN D3 [Concomitant]
     Dosage: 10000 UNITS ONCE WEEKLY
  26. FLURBIPROFEN [Concomitant]
     Active Substance: FLURBIPROFEN
     Indication: Antiinflammatory therapy
     Dosage: 100 MG, AS NEEDED
  27. FLURBIPROFEN [Concomitant]
     Active Substance: FLURBIPROFEN
     Dosage: 100 MG
  28. ATIVAN [Concomitant]
     Active Substance: LORAZEPAM
     Indication: Relaxation therapy
     Dosage: 1 MG, 2 TIMES DAILY AS NEEDED
  29. ATIVAN [Concomitant]
     Active Substance: LORAZEPAM
     Dosage: 1 MG
  30. DIPHENHYDRAMINE HYDROCHLORIDE [Concomitant]
     Active Substance: DIPHENHYDRAMINE HYDROCHLORIDE
     Indication: Premedication
     Dosage: 50 MILLIGRAM PO
     Route: 048
  31. DIPHENHYDRAMINE HYDROCHLORIDE [Concomitant]
     Active Substance: DIPHENHYDRAMINE HYDROCHLORIDE
     Dosage: 50 MILLIGRAM
     Route: 048
  32. METHYLPREDNISOLONE [Concomitant]
     Active Substance: METHYLPREDNISOLONE
     Indication: Premedication
     Dosage: 100 MILLIGRAM IV
     Route: 042
  33. METHYLPREDNISOLONE [Concomitant]
     Active Substance: METHYLPREDNISOLONE
     Dosage: 100 MILLIGRAM
     Route: 042
  34. SYNTHROID [Concomitant]
     Active Substance: LEVOTHYROXINE SODIUM
     Indication: Thyroid disorder
     Dosage: 75 MCG DAILY IN THE MORNING (FOR THYROID)
  35. VIT D [VITAMIN D NOS] [Concomitant]
  36. METHOTREXATE SODIUM [Concomitant]
     Active Substance: METHOTREXATE SODIUM
  37. FOLIC ACID [Concomitant]
     Active Substance: FOLIC ACID
  38. ACETAMINOPHEN [Concomitant]
     Active Substance: ACETAMINOPHEN
     Indication: Premedication
     Dosage: 650 MG
     Route: 048
  39. ACETAMINOPHEN [Concomitant]
     Active Substance: ACETAMINOPHEN
     Indication: Pain
  40. METHOTREXATE [Concomitant]
     Active Substance: METHOTREXATE
     Indication: Rheumatoid arthritis
     Dosage: 20 MG, 1 EVERY 1 WEEKS
  41. METHOTREXATE [Concomitant]
     Active Substance: METHOTREXATE
  42. METHYLPREDNISOLONE SODIUM SUCCINATE [Concomitant]
     Active Substance: METHYLPREDNISOLONE SODIUM SUCCINATE
     Indication: Premedication
     Dosage: 100 MILLIGRAM
     Route: 042
  43. PAROXETINE [Concomitant]
     Active Substance: PAROXETINE
     Indication: Depression
     Dosage: 20 MILLIGRAM
  44. PREGABALIN [Concomitant]
     Active Substance: PREGABALIN
     Indication: Relaxation therapy
     Dosage: 75 MILLIGRAM
  45. VITAMIN D3 [Concomitant]
     Active Substance: CHOLECALCIFEROL
     Dosage: 10000 INTERNATIONAL UNIT, 1 EVERY 1 WEEKS
     Route: 042

REACTIONS (27)
  - Bladder disorder [Recovered/Resolved]
  - Gingival disorder [Unknown]
  - Knee operation [Not Recovered/Not Resolved]
  - Surgery [Not Recovered/Not Resolved]
  - Hypertension [Unknown]
  - Hypertension [Not Recovered/Not Resolved]
  - Malaise [Not Recovered/Not Resolved]
  - Lung disorder [Not Recovered/Not Resolved]
  - Cough [Not Recovered/Not Resolved]
  - Pyrexia [Not Recovered/Not Resolved]
  - Rhinorrhoea [Not Recovered/Not Resolved]
  - Fatigue [Not Recovered/Not Resolved]
  - Nausea [Not Recovered/Not Resolved]
  - Headache [Not Recovered/Not Resolved]
  - Headache [Not Recovered/Not Resolved]
  - Nasopharyngitis [Not Recovered/Not Resolved]
  - SARS-CoV-2 test positive [Not Recovered/Not Resolved]
  - Tooth infection [Recovered/Resolved]
  - Intentional dose omission [Not Recovered/Not Resolved]
  - Off label use [Not Recovered/Not Resolved]
  - Off label use [Not Recovered/Not Resolved]
  - Off label use [Not Recovered/Not Resolved]
  - Intentional product use issue [Not Recovered/Not Resolved]
  - Ill-defined disorder [Unknown]
  - Localised infection [Unknown]
  - Arthralgia [Unknown]
  - Incorrect dose administered [Not Recovered/Not Resolved]

NARRATIVE: CASE EVENT DATE: 20220422
